FAERS Safety Report 10611143 (Version 2)
Quarter: 2015Q2

REPORT INFORMATION
  Report Type: Spontaneous
  Country: US (occurrence: US)
  Receive Date: 20141126
  Receipt Date: 20150508
  Transmission Date: 20150821
  Serious: Yes (Hospitalization, Other)
  Sender: FDA-Public Use
  Company Number: US-BAYER-2014-174787

PATIENT
  Age: 22 Year
  Sex: Female
  Weight: 60.32 kg

DRUGS (11)
  1. YAZ [Suspect]
     Active Substance: DROSPIRENONE\ETHINYL ESTRADIOL
     Dosage: UNK
     Route: 048
     Dates: start: 200612, end: 200702
  2. MORPHIN [Concomitant]
     Active Substance: MORPHINE
     Indication: PAIN
     Dosage: 15 MG, Q8HR
     Route: 048
  3. CLONAZEPAM. [Concomitant]
     Active Substance: CLONAZEPAM
     Indication: ANXIETY
     Dosage: 1 MG, TID
     Route: 048
  4. MELATONIN [Concomitant]
     Active Substance: MELATONIN
     Dosage: UNK
     Dates: start: 20100211, end: 20100320
  5. ATENOLOL. [Concomitant]
     Active Substance: ATENOLOL
     Indication: BLOOD PRESSURE
     Dosage: 50 MG, QD
     Route: 048
  6. ESCITALOPRAM OXALATE. [Concomitant]
     Active Substance: ESCITALOPRAM OXALATE
     Indication: AFFECTIVE DISORDER
     Dosage: 20 MG, UNK
     Route: 048
  7. LEVAQUIN [Concomitant]
     Active Substance: LEVOFLOXACIN
  8. MIRALAX [Concomitant]
     Active Substance: POLYETHYLENE GLYCOL 3350
  9. DIVALPROEX [Concomitant]
     Active Substance: DIVALPROEX SODIUM
     Dosage: 250 MG, HS
     Route: 048
  10. LEVOTHYROXIN [Concomitant]
     Active Substance: LEVOTHYROXINE
     Indication: THYROID DISORDER
     Dosage: 0.05 MG, UNK
     Route: 048
  11. POLYETHYLENE GLYCOL [Concomitant]
     Active Substance: POLYETHYLENE GLYCOLS

REACTIONS (10)
  - Vena cava thrombosis [None]
  - General physical health deterioration [None]
  - Emotional distress [None]
  - Depression [None]
  - Injury [None]
  - Anxiety [None]
  - Gene mutation [None]
  - Deep vein thrombosis [None]
  - Hypertension [None]
  - Pain [None]

NARRATIVE: CASE EVENT DATE: 201003
